FAERS Safety Report 9665063 (Version 1)
Quarter: 2013Q4

REPORT INFORMATION
  Report Type: Spontaneous
  Country: US (occurrence: US)
  Receive Date: 20131103
  Receipt Date: 20131103
  Transmission Date: 20140711
  Serious: Yes (Other)
  Sender: FDA-Public Use
  Company Number: US-ELI_LILLY_AND_COMPANY-US201310007221

PATIENT
  Sex: Male

DRUGS (7)
  1. HUMALOG LISPRO [Suspect]
     Indication: TYPE 2 DIABETES MELLITUS
     Dosage: 3 U, EACH MORNING
     Route: 065
     Dates: start: 1994
  2. HUMALOG LISPRO [Suspect]
     Dosage: 5 U, QD
     Route: 065
     Dates: start: 1994
  3. LANTUS [Concomitant]
     Dosage: UNK, QD
  4. TOPROL [Concomitant]
     Dosage: 25 MG, UNKNOWN
  5. CLONAZEPAM [Concomitant]
     Dosage: 1.5 MG, UNKNOWN
  6. VITAMIN D                          /00107901/ [Concomitant]
     Dosage: 1 DF, QD
  7. ASPIRIN [Concomitant]
     Dosage: 1 DF, UNKNOWN

REACTIONS (6)
  - Skin cancer [Unknown]
  - Prostate cancer [Unknown]
  - Blood glucose increased [Unknown]
  - Erythema [Unknown]
  - Rash [Unknown]
  - Medication error [Unknown]
